FAERS Safety Report 4690756-5 (Version None)
Quarter: 2005Q2

REPORT INFORMATION
  Report Type: 
  Country: None (occurrence: None)
  Receive Date: 20050615
  Receipt Date: 20050315
  Transmission Date: 20051028
  Serious: Yes (Hospitalization)
  Sender: FDA-Public Use
  Company Number: US-MERCK-0503USA02946

PATIENT
  Age: 69 Year
  Sex: Male
  Weight: 77 kg

DRUGS (3)
  1. VIOXX [Suspect]
     Indication: MONARTHRITIS
     Route: 048
     Dates: start: 20000501, end: 20040301
  2. VIOXX [Suspect]
     Route: 048
  3. ALEVE [Concomitant]
     Indication: ARTHRITIS
     Route: 065
     Dates: start: 20030101

REACTIONS (8)
  - BLOOD CHOLESTEROL INCREASED [None]
  - CHEST PAIN [None]
  - DIVERTICULUM INTESTINAL [None]
  - DYSPNOEA [None]
  - HEADACHE [None]
  - HERNIA [None]
  - HYPERTENSION [None]
  - MYOCARDIAL INFARCTION [None]
